FAERS Safety Report 25443959 (Version 1)
Quarter: 2025Q2

REPORT INFORMATION
  Report Type: Spontaneous
  Country: RO (occurrence: RO)
  Receive Date: 20250617
  Receipt Date: 20250617
  Transmission Date: 20250717
  Serious: Yes (Other)
  Sender: CELLTRION
  Company Number: RO-ROCHE-10000182896

PATIENT

DRUGS (3)
  1. TRASTUZUMAB [Suspect]
     Active Substance: TRASTUZUMAB
     Indication: Breast cancer
     Route: 065
     Dates: start: 2013
  2. TRASTUZUMAB [Suspect]
     Active Substance: TRASTUZUMAB
     Indication: Invasive breast carcinoma
  3. CAPECITABINE [Concomitant]
     Active Substance: CAPECITABINE
     Route: 065

REACTIONS (5)
  - Breast cancer metastatic [Unknown]
  - Osteonecrosis of jaw [Unknown]
  - Neuropathy peripheral [Unknown]
  - Disease progression [Unknown]
  - Tooth disorder [Unknown]
